FAERS Safety Report 16444100 (Version 11)
Quarter: 2025Q1

REPORT INFORMATION
  Report Type: Report from Study
  Country: JP (occurrence: JP)
  Receive Date: 20190618
  Receipt Date: 20250226
  Transmission Date: 20250408
  Serious: Yes (Death, Hospitalization, Disabling, Other)
  Sender: GLAXOSMITHKLINE
  Company Number: JP-GSKJP-JP2019JPN108916AA

PATIENT

DRUGS (23)
  1. MEPOLIZUMAB [Suspect]
     Active Substance: MEPOLIZUMAB
     Indication: Eosinophilic granulomatosis with polyangiitis
     Dosage: 300MG EVERY 4 WEEKS
     Route: 058
     Dates: start: 20190222, end: 20190222
  2. MEPOLIZUMAB [Suspect]
     Active Substance: MEPOLIZUMAB
     Indication: Asthma
     Dosage: 300 MG, QD
     Route: 058
     Dates: start: 20190322, end: 20190322
  3. MEPOLIZUMAB [Suspect]
     Active Substance: MEPOLIZUMAB
     Indication: Neuropathy peripheral
     Dosage: 300 MG, QD
     Route: 058
     Dates: start: 20190416, end: 20190416
  4. MEPOLIZUMAB [Suspect]
     Active Substance: MEPOLIZUMAB
     Dosage: 300 MG, QD
     Route: 058
     Dates: start: 20190601, end: 20190601
  5. SYMBICORT [Suspect]
     Active Substance: BUDESONIDE\FORMOTEROL FUMARATE DIHYDRATE
     Dosage: 240 UG, 1D
     Dates: end: 20190607
  6. METHYLCOBALAMIN [Concomitant]
     Active Substance: METHYLCOBALAMIN
     Indication: Eosinophilic granulomatosis with polyangiitis
     Dosage: 1500 ?G, 1D
  7. NEUROTROPIN [Concomitant]
     Active Substance: NEUROTROPIN
     Indication: Eosinophilic granulomatosis with polyangiitis
     Dosage: 8 UNIT, 1D
  8. TRAMADOL [Concomitant]
     Active Substance: TRAMADOL
     Dosage: 75 MG, 1D
  9. PREDONINE [Concomitant]
     Active Substance: PREDNISOLONE
     Indication: Eosinophilic granulomatosis with polyangiitis
     Dosage: 15 MG, 1D
     Dates: end: 20190221
  10. PREDONINE [Concomitant]
     Active Substance: PREDNISOLONE
     Dosage: 10 MG, 1D
     Dates: start: 20190222, end: 20190321
  11. PREDONINE [Concomitant]
     Active Substance: PREDNISOLONE
     Dosage: 5 MG, 1D
     Dates: start: 20190322, end: 20190509
  12. PREDONINE [Concomitant]
     Active Substance: PREDNISOLONE
     Dosage: 10 MG, 1D
     Dates: start: 20190510, end: 20190607
  13. SULFAMETHOXAZOLE\TRIMETHOPRIM [Concomitant]
     Active Substance: SULFAMETHOXAZOLE\TRIMETHOPRIM
     Indication: Opportunistic infection prophylaxis
     Dosage: 0.5 DF, 1D
  14. ALENDRONATE SODIUM [Concomitant]
     Active Substance: ALENDRONATE SODIUM
     Indication: Osteoporosis prophylaxis
  15. FEBUXOSTAT [Concomitant]
     Active Substance: FEBUXOSTAT
     Indication: Hyperuricaemia
     Dosage: 10 MG, 1D
  16. FUROSEMIDE [Concomitant]
     Active Substance: FUROSEMIDE
     Dosage: 20 MG, 1D
  17. LYRICA [Concomitant]
     Active Substance: PREGABALIN
     Indication: Eosinophilic granulomatosis with polyangiitis
     Dosage: 100 MG, 1D
  18. AMITRIPTYLINE [Concomitant]
     Active Substance: AMITRIPTYLINE
     Indication: Eosinophilic granulomatosis with polyangiitis
     Dosage: 10 MG, 1D
  19. VOGLIBOSE [Concomitant]
     Active Substance: VOGLIBOSE
     Dosage: 0.6 MG, 1D
  20. NEXIUM [Concomitant]
     Active Substance: ESOMEPRAZOLE MAGNESIUM
     Dosage: 20 MG, 1D
  21. TENELIGLIPTIN [Concomitant]
     Active Substance: TENELIGLIPTIN
     Indication: Diabetes mellitus
  22. NIFEDIPINE [Concomitant]
     Active Substance: NIFEDIPINE
     Indication: Hypertension
  23. LANSOPRAZOLE [Concomitant]
     Active Substance: LANSOPRAZOLE
     Indication: Prophylaxis against gastrointestinal ulcer

REACTIONS (11)
  - Loss of consciousness [Fatal]
  - Circulatory collapse [Fatal]
  - Thalamus haemorrhage [Fatal]
  - Dehydration [Recovered/Resolved]
  - Oedema [Recovering/Resolving]
  - Blood glucose increased [Recovering/Resolving]
  - Pleural effusion [Fatal]
  - Pleurisy [Fatal]
  - Peripheral sensory neuropathy [Fatal]
  - Mononeuropathy multiplex [Fatal]
  - Inappropriate schedule of product administration [Unknown]

NARRATIVE: CASE EVENT DATE: 20190503
